FAERS Safety Report 7612093-9 (Version None)
Quarter: 2011Q3

REPORT INFORMATION
  Report Type: 
  Country: None (occurrence: None)
  Receive Date: 20110715
  Receipt Date: 20110709
  Transmission Date: 20111222
  Serious: Yes (Hospitalization)
  Sender: FDA-Public Use
  Company Number: US-SANOFI-AVENTIS-2011SA044233

PATIENT
  Age: 58 Year
  Sex: Female

DRUGS (3)
  1. ACTOS [Suspect]
     Route: 065
     Dates: end: 20100801
  2. NAPROXEN [Concomitant]
  3. GLYBURIDE [Suspect]
     Route: 065
     Dates: end: 20100801

REACTIONS (2)
  - RENAL FAILURE [None]
  - HYPOTENSION [None]
